FAERS Safety Report 15423208 (Version 2)
Quarter: 2019Q3

REPORT INFORMATION
  Report Type: Spontaneous
  Country: PL (occurrence: PL)
  Receive Date: 20180925
  Receipt Date: 20190930
  Transmission Date: 20191004
  Serious: Yes (Other)
  Sender: FDA-Public Use
  Company Number: PL-SUN PHARMACEUTICAL INDUSTRIES LTD-2018RR-185354

PATIENT
  Age: 51 Year
  Sex: Male

DRUGS (22)
  1. PREDNISONE. [Suspect]
     Active Substance: PREDNISONE
     Dosage: THE DOSE WAS REDUCED BY 2.5 MG EVERY 5 DAYS UNTIL THE TARGET DOSE OF 5 MG/D AFTER 6 WEEK WAS REAC...
     Route: 065
  2. PREDNISONE. [Suspect]
     Active Substance: PREDNISONE
     Indication: PRODUCT USED FOR UNKNOWN INDICATION
     Dosage: 30 MILLIGRAM
     Route: 065
  3. SULFAMETHOXAZOLE AND TRIMETHOPRIM [Suspect]
     Active Substance: SULFAMETHOXAZOLE\TRIMETHOPRIM
     Indication: PNEUMOCYSTIS JIROVECII PNEUMONIA
     Dosage: 1920 MILLIGRAM, TID
     Route: 042
  4. DOXYCLINE [Suspect]
     Active Substance: DOXYCYCLINE
     Indication: PNEUMOCYSTIS JIROVECII PNEUMONIA
     Dosage: UNK ()
     Route: 065
  5. METHYLPREDNISOLONE. [Suspect]
     Active Substance: METHYLPREDNISOLONE
     Indication: IMMUNOSUPPRESSANT DRUG THERAPY
     Dosage: 3 X 40 MG/DAY
     Route: 042
  6. NYSTATIN. [Suspect]
     Active Substance: NYSTATIN
     Indication: PROPHYLAXIS
     Dosage: UNK ()
     Route: 065
  7. PREDNISONE. [Suspect]
     Active Substance: PREDNISONE
     Indication: PRODUCT USED FOR UNKNOWN INDICATION
     Dosage: 60 MILLIGRAM
     Route: 065
  8. MYCOPHENOLATE MOFETIL. [Suspect]
     Active Substance: MYCOPHENOLATE MOFETIL
     Indication: PRODUCT USED FOR UNKNOWN INDICATION
     Dosage: 250 MILLIGRAM, DAILY
     Route: 065
  9. CLARITHROMYCIN. [Suspect]
     Active Substance: CLARITHROMYCIN
     Indication: PNEUMOCYSTIS JIROVECII PNEUMONIA
     Dosage: UNK ()
     Route: 065
  10. SULFAMETHOXAZOLE W/TRIMETHOPRIM [Suspect]
     Active Substance: SULFAMETHOXAZOLE\TRIMETHOPRIM
     Indication: PNEUMOCYSTIS JIROVECII PNEUMONIA
     Dosage: 960 MG, UNK
     Route: 042
  11. ENVARSUS XR [Suspect]
     Active Substance: TACROLIMUS
     Indication: IMMUNOSUPPRESSANT DRUG THERAPY
     Dosage: UNK ()
     Route: 048
  12. MYCOPHENOLATE MOFETIL. [Suspect]
     Active Substance: MYCOPHENOLATE MOFETIL
     Indication: PRODUCT USED FOR UNKNOWN INDICATION
     Route: 065
  13. COTRIMOXAZOLE [Suspect]
     Active Substance: SULFAMETHOXAZOLE\TRIMETHOPRIM
     Indication: PNEUMOCYSTIS JIROVECII PNEUMONIA
     Dosage: UNK, UNKNOWN FREQ. (HIGH DOSES)
     Route: 065
  14. VALGANCICLOVIR. [Suspect]
     Active Substance: VALGANCICLOVIR
     Indication: PRODUCT USED FOR UNKNOWN INDICATION
     Dosage: UNK ()
     Route: 065
  15. HYDROCORTISONE. [Suspect]
     Active Substance: HYDROCORTISONE
     Indication: SKIN LESION
     Dosage: UNK, UNKNOWN FREQ.
     Route: 065
  16. SULFAMETHOXAZOLE AND TRIMETHOPRIM [Suspect]
     Active Substance: SULFAMETHOXAZOLE\TRIMETHOPRIM
     Indication: PRODUCT USED FOR UNKNOWN INDICATION
     Dosage: 960 MILLIGRAM, DAILY
     Route: 048
  17. CEFTRIAXONE. [Suspect]
     Active Substance: CEFTRIAXONE
     Indication: PNEUMOCYSTIS JIROVECII PNEUMONIA
     Dosage: UNK ()
     Route: 065
  18. PREDNISONE. [Suspect]
     Active Substance: PREDNISONE
     Indication: IMMUNOSUPPRESSANT DRUG THERAPY
     Dosage: THE DOSE WAS REDUCED BY 2.5 MG EVERY 5 DAYS UNTIL THE TARGET DOSE OF 5 MG/D AFTER 6 WEEK WAS REAC...
     Route: 065
  19. MYCOPHENOLATE MOFETIL. [Suspect]
     Active Substance: MYCOPHENOLATE MOFETIL
     Indication: IMMUNOSUPPRESSANT DRUG THERAPY
     Dosage: UNK ()
     Route: 065
  20. SULFAMETHOXAZOLE AND TRIMETHOPRIM [Suspect]
     Active Substance: SULFAMETHOXAZOLE\TRIMETHOPRIM
     Indication: PRODUCT USED FOR UNKNOWN INDICATION
     Dosage: 480 MILLIGRAM, DAILY
     Route: 065
  21. CIPROFLOXACIN. [Suspect]
     Active Substance: CIPROFLOXACIN
     Indication: PROPHYLAXIS URINARY TRACT INFECTION
     Dosage: 250 MG, QD
     Route: 065
  22. SULFAMETHOXAZOLE W/TRIMETHOPRIM [Suspect]
     Active Substance: SULFAMETHOXAZOLE\TRIMETHOPRIM
     Indication: PRODUCT USED FOR UNKNOWN INDICATION
     Dosage: 1920 MG, 1/HOUR
     Route: 048

REACTIONS (14)
  - Rash maculo-papular [Recovered/Resolved]
  - Candida infection [Unknown]
  - Corynebacterium infection [Recovered/Resolved]
  - Hypercapnia [Recovered/Resolved]
  - Oral candidiasis [Unknown]
  - Urinary tract infection [Recovered/Resolved]
  - Anaemia [Recovered/Resolved]
  - Aphthous ulcer [Unknown]
  - Pneumocystis jirovecii pneumonia [Unknown]
  - Hypoxia [Recovered/Resolved]
  - Oral candidiasis [Recovered/Resolved]
  - Renal impairment [Recovered/Resolved]
  - Pruritus [Recovered/Resolved]
  - Drug ineffective [Unknown]
